FAERS Safety Report 14666069 (Version 1)
Quarter: 2018Q1

REPORT INFORMATION
  Report Type: Spontaneous
  Country: FR (occurrence: FR)
  Receive Date: 20180321
  Receipt Date: 20180321
  Transmission Date: 20180509
  Serious: Yes (Life-Threatening)
  Sender: FDA-Public Use
  Company Number: FR-MYLANLABS-2018M1019411

PATIENT
  Age: 32 Year
  Sex: Male
  Weight: 53 kg

DRUGS (7)
  1. CLOPIXOL                           /00876702/ [Suspect]
     Active Substance: ZUCLOPENTHIXOL ACETATE
     Indication: SCHIZOPHRENIA
     Dosage: 400 MG, UNK
     Route: 030
     Dates: end: 20171124
  2. CLOZAPINE MYLAN [Suspect]
     Active Substance: CLOZAPINE
     Indication: SCHIZOPHRENIA
     Dosage: 750 MG, UNK
     Route: 048
  3. LORAZEPAM. [Concomitant]
     Active Substance: LORAZEPAM
     Indication: ANXIETY
     Dosage: 6 MG, UNK
     Route: 048
     Dates: start: 20171129, end: 20171205
  4. LEPTICUR [Concomitant]
     Active Substance: TROPATEPINE HYDROCHLORIDE
     Indication: PARKINSONISM
     Dosage: 2 DF, UNK
     Route: 048
  5. MODECATE [Suspect]
     Active Substance: FLUPHENAZINE DECANOATE
     Indication: SCHIZOPHRENIA
     Dosage: 125 MG, UNK
     Route: 030
  6. LOXAPAC                            /00401802/ [Suspect]
     Active Substance: LOXAPINE SUCCINATE
     Indication: SCHIZOPHRENIA
     Dosage: 3 DF, UNK
     Route: 048
  7. VOGALENE [Suspect]
     Active Substance: METOPIMAZINE
     Indication: NAUSEA
     Dosage: UNK
     Route: 048

REACTIONS (7)
  - Tachycardia [Recovered/Resolved]
  - Coma [Recovered/Resolved]
  - Blood creatine phosphokinase increased [Recovered/Resolved]
  - Musculoskeletal stiffness [Recovered/Resolved]
  - Hyperthermia [Recovered/Resolved]
  - Hypotension [Recovered/Resolved]
  - Neuroleptic malignant syndrome [Recovered/Resolved]

NARRATIVE: CASE EVENT DATE: 20171204
